FAERS Safety Report 25830983 (Version 1)
Quarter: 2025Q3

REPORT INFORMATION
  Report Type: Spontaneous
  Country: JP (occurrence: JP)
  Receive Date: 20250922
  Receipt Date: 20250922
  Transmission Date: 20251021
  Serious: Yes (Other)
  Sender: ABBVIE
  Company Number: JP-ABBVIE-6468302

PATIENT

DRUGS (1)
  1. RINVOQ [Suspect]
     Active Substance: UPADACITINIB
     Indication: Crohn^s disease
     Route: 048

REACTIONS (7)
  - Intestinal resection [Unknown]
  - Blood creatine phosphokinase increased [Unknown]
  - Headache [Unknown]
  - Pneumonia [Unknown]
  - Herpes zoster [Unknown]
  - Drug ineffective [Unknown]
  - Acne [Unknown]
